FAERS Safety Report 20643885 (Version 1)
Quarter: 2022Q1

REPORT INFORMATION
  Report Type: Spontaneous
  Country: US (occurrence: None)
  Receive Date: 20220327
  Receipt Date: 20220327
  Transmission Date: 20220424
  Serious: Yes (Disabling, Other)
  Sender: FDA-Public Use
  Company Number: None

PATIENT
  Age: 57 Year
  Sex: Female
  Weight: 49.5 kg

DRUGS (1)
  1. BOTOX [Suspect]
     Active Substance: ONABOTULINUMTOXINA
     Indication: Migraine
     Dosage: OTHER ROUTE : SQ;?
     Route: 050
     Dates: start: 20210521, end: 20220225

REACTIONS (2)
  - Retinal vein occlusion [None]
  - Optic ischaemic neuropathy [None]

NARRATIVE: CASE EVENT DATE: 20220303
